FAERS Safety Report 5990741-7 (Version None)
Quarter: 2008Q4

REPORT INFORMATION
  Report Type: 
  Country: None (occurrence: None)
  Receive Date: 20081211
  Receipt Date: 20081203
  Transmission Date: 20090506
  Serious: Yes (Other)
  Sender: FDA-Public Use
  Company Number: CN-WATSON-2008-07129

PATIENT
  Age: 31 Year
  Sex: Female

DRUGS (3)
  1. TRELSTAR DEPOT [Suspect]
     Indication: ENDOMETRIOSIS
     Dosage: 3.75MG X 1
     Route: 030
     Dates: start: 20081021, end: 20081021
  2. TRELSTAR DEPOT [Suspect]
     Dosage: 3.75MG X 1
     Route: 030
     Dates: start: 20080922, end: 20080922
  3. HERBAL PREPARATION [Concomitant]
     Indication: DRUG USE FOR UNKNOWN INDICATION
     Dosage: UNK
     Route: 065

REACTIONS (2)
  - LARYNGEAL OEDEMA [None]
  - URTICARIA [None]
